FAERS Safety Report 12073605 (Version 1)
Quarter: 2016Q1

REPORT INFORMATION
  Report Type: Spontaneous
  Country: NO (occurrence: NO)
  Receive Date: 20160212
  Receipt Date: 20160212
  Transmission Date: 20160526
  Serious: Yes (Hospitalization)
  Sender: FDA-Public Use
  Company Number: NO-PFIZER INC-2016077169

PATIENT
  Age: 48 Year
  Sex: Female

DRUGS (2)
  1. EXEMESTANE. [Suspect]
     Active Substance: EXEMESTANE
     Indication: BREAST CANCER METASTATIC
     Dosage: UNK
     Dates: start: 20151123
  2. AFINITOR [Suspect]
     Active Substance: EVEROLIMUS
     Indication: BREAST CANCER METASTATIC
     Dosage: UNK
     Dates: start: 20151123

REACTIONS (14)
  - Gastrointestinal oedema [Unknown]
  - Liver function test increased [Unknown]
  - Blood glucose increased [Unknown]
  - Renal disorder [Unknown]
  - Fatigue [Unknown]
  - Hepatomegaly [Unknown]
  - Abdominal distension [Unknown]
  - Gastrointestinal disorder [Unknown]
  - Electrolyte imbalance [Unknown]
  - Breast cancer metastatic [Unknown]
  - Disease progression [Unknown]
  - Ascites [Unknown]
  - Abdominal pain [Unknown]
  - Weight decreased [Unknown]
